FAERS Safety Report 16307352 (Version 1)
Quarter: 2019Q2

REPORT INFORMATION
  Report Type: Spontaneous
  Country: GB (occurrence: GB)
  Receive Date: 20190514
  Receipt Date: 20190514
  Transmission Date: 20190711
  Serious: Yes (Hospitalization)
  Sender: FDA-Public Use
  Company Number: GB-DEXPHARM-20190312

PATIENT
  Age: 70 Year
  Sex: Female

DRUGS (12)
  1. INSULIN [Concomitant]
     Active Substance: INSULIN NOS
  2. BISOPROLOL [Concomitant]
     Active Substance: BISOPROLOL
  3. CO-AMOXICLAV [Concomitant]
     Active Substance: AMOXICILLIN\CLAVULANATE POTASSIUM
  4. NITROFURANTOIN. [Concomitant]
     Active Substance: NITROFURANTOIN
  5. CODEINE [Suspect]
     Active Substance: CODEINE
     Indication: PAIN
     Dosage: MORNING ; AS NECESSARY
     Route: 048
     Dates: start: 20190201, end: 20190405
  6. RAMIPRIL. [Concomitant]
     Active Substance: RAMIPRIL
  7. OMEPRAZOLE. [Suspect]
     Active Substance: OMEPRAZOLE
     Indication: DYSPEPSIA
     Dosage: MORNING
     Route: 048
     Dates: start: 20180601, end: 20190405
  8. ASPIRIN. [Concomitant]
     Active Substance: ASPIRIN
  9. ENOXAPARIN [Concomitant]
     Active Substance: ENOXAPARIN
  10. RANITIDINE. [Concomitant]
     Active Substance: RANITIDINE
  11. PARACETAMOL [Concomitant]
     Active Substance: ACETAMINOPHEN
  12. NOVOMIX [Concomitant]
     Active Substance: INSULIN ASPART

REACTIONS (2)
  - Constipation [Recovered/Resolved]
  - Hyponatraemia [Recovering/Resolving]

NARRATIVE: CASE EVENT DATE: 20190404
